FAERS Safety Report 21287020 (Version 13)
Quarter: 2024Q2

REPORT INFORMATION
  Report Type: Report from Study
  Country: PE (occurrence: PE)
  Receive Date: 20220902
  Receipt Date: 20240524
  Transmission Date: 20240717
  Serious: Yes (Hospitalization, Other)
  Sender: FDA-Public Use
  Company Number: PE-NOVARTISPH-NVSC2022PE188909

PATIENT
  Age: 68 Year
  Sex: Female

DRUGS (6)
  1. KISQALI [Suspect]
     Active Substance: RIBOCICLIB
     Indication: Breast cancer metastatic
     Dosage: 600 MG, QD (3 UNITS)
     Route: 048
     Dates: start: 20220718
  2. KISQALI [Suspect]
     Active Substance: RIBOCICLIB
     Dosage: DOSE INCREASED TO 1000 MG, QD (3 IN THE MORNING AND 2 AT NIGHT)
     Route: 048
     Dates: start: 20221003
  3. KISQALI [Suspect]
     Active Substance: RIBOCICLIB
     Dosage: 4 DOSAGE FORM (TWO IN THE MORNING AND TWO AT NIGHT
     Route: 065
  4. KISQALI [Suspect]
     Active Substance: RIBOCICLIB
     Dosage: 400 MG, QD (200 MG, BID) (REDUCED DOSE) (1 TABLET IN THE MORNING AND 1 AT NIGHT)
     Route: 048
  5. KISQALI [Suspect]
     Active Substance: RIBOCICLIB
     Dosage: 1X20 MG, BID (MORNING/NIGHT)
     Route: 048
  6. NEUROBION [Concomitant]
     Active Substance: CYANOCOBALAMIN\PYRIDOXINE\THIAMINE
     Indication: Asthenia
     Dosage: UNK
     Route: 065

REACTIONS (30)
  - General physical health deterioration [Recovered/Resolved]
  - Vomiting [Recovered/Resolved]
  - Diabetes mellitus [Unknown]
  - Urinary tract infection [Unknown]
  - Abdominal pain [Recovered/Resolved]
  - Gastric haemorrhage [Unknown]
  - Blood glucose fluctuation [Unknown]
  - Drug intolerance [Unknown]
  - Osteoarthritis [Unknown]
  - Synovial cyst [Unknown]
  - Influenza [Unknown]
  - Decreased immune responsiveness [Unknown]
  - Myalgia [Unknown]
  - Anxiety [Unknown]
  - Thyroid disorder [Unknown]
  - Gait disturbance [Unknown]
  - Haemoglobin decreased [Unknown]
  - Nasopharyngitis [Not Recovered/Not Resolved]
  - Malaise [Unknown]
  - Diarrhoea [Recovering/Resolving]
  - Bronchitis [Unknown]
  - Tumour marker increased [Unknown]
  - White blood cell count decreased [Unknown]
  - Noninfective gingivitis [Unknown]
  - Off label use [Unknown]
  - Nasal congestion [Unknown]
  - Gingival bleeding [Unknown]
  - Vaginal haemorrhage [Unknown]
  - Pulmonary mass [Recovered/Resolved]
  - Lymphadenopathy [Unknown]

NARRATIVE: CASE EVENT DATE: 20220816
